FAERS Safety Report 8248415-8 (Version None)
Quarter: 2012Q1

REPORT INFORMATION
  Report Type: 
  Country: None (occurrence: None)
  Receive Date: 20120330
  Receipt Date: 20120322
  Transmission Date: 20120608
  Serious: Yes (Other)
  Sender: FDA-Public Use
  Company Number: GXBR2012US000901

PATIENT
  Sex: Female
  Weight: 72.562 kg

DRUGS (6)
  1. SIROLIMUS [Suspect]
     Indication: LIVER TRANSPLANT
     Dosage: 2 MG, QD
     Route: 048
  2. MYCOPHENOLATE MOFETIL [Suspect]
     Indication: LIVER TRANSPLANT
     Dosage: 1000 MG, BID
     Route: 048
     Dates: end: 20110616
  3. MULTI-VITAMINS [Suspect]
     Dosage: UNK DF, UNK
  4. INSULIN [Suspect]
     Indication: DIABETES MELLITUS
     Dosage: ADMINISTERED VIA INSULIN PUMP
  5. URSODIOL [Suspect]
     Dosage: UNK DF, UNK
  6. TACROLIMUS [Suspect]
     Indication: LIVER TRANSPLANT
     Dosage: 2 MG, BID
     Route: 048

REACTIONS (2)
  - ABORTION SPONTANEOUS [None]
  - MATERNAL EXPOSURE DURING PREGNANCY [None]
